FAERS Safety Report 8960112 (Version 1)
Quarter: 2012Q4

REPORT INFORMATION
  Report Type: 
  Country: FR (occurrence: FR)
  Receive Date: 20121211
  Receipt Date: 20121211
  Transmission Date: 20130627
  Serious: Yes (Hospitalization)
  Sender: FDA-Public Use
  Company Number: FR-VIIV HEALTHCARE LIMITED-B0849345A

PATIENT
  Age: 53 Year
  Sex: Male

DRUGS (4)
  1. KIVEXA [Suspect]
     Indication: HIV INFECTION
     Dosage: 1TAB Per day
     Route: 048
     Dates: start: 20051123
  2. NORVIR [Suspect]
     Indication: HIV INFECTION
     Dosage: 100MG Per day
     Route: 048
     Dates: start: 20051123
  3. REYATAZ [Suspect]
     Indication: HIV INFECTION
     Dosage: 300MG Per day
     Route: 048
     Dates: start: 20051123
  4. UVEDOSE [Concomitant]
     Route: 065

REACTIONS (2)
  - Osteonecrosis [Not Recovered/Not Resolved]
  - Hyperadrenocorticism [Not Recovered/Not Resolved]
